FAERS Safety Report 9147979 (Version 2)
Quarter: 2013Q1

REPORT INFORMATION
  Report Type: Spontaneous
  Country: SE (occurrence: SE)
  Receive Date: 20130307
  Receipt Date: 20130314
  Transmission Date: 20140127
  Serious: Yes (Hospitalization, Other)
  Sender: FDA-Public Use
  Company Number: SE-BRISTOL-MYERS SQUIBB COMPANY-17307869

PATIENT
  Age: 65 Year
  Sex: Female

DRUGS (2)
  1. VEPESID [Suspect]
     Indication: NEOPLASM
     Dates: start: 201212
  2. CARBOPLATIN [Suspect]
     Indication: NEOPLASM
     Dates: start: 201212

REACTIONS (3)
  - Pancytopenia [Recovered/Resolved]
  - Sepsis [Recovered/Resolved]
  - Hypoglycaemia [Unknown]
